FAERS Safety Report 11330102 (Version 1)
Quarter: 2015Q3

REPORT INFORMATION
  Report Type: Spontaneous
  Country: VE (occurrence: VE)
  Receive Date: 20150803
  Receipt Date: 20150803
  Transmission Date: 20151125
  Serious: Yes (Other)
  Sender: FDA-Public Use
  Company Number: VE-BIOGENIDEC-2015BI106052

PATIENT
  Age: 39 Year
  Sex: Female

DRUGS (1)
  1. AVONEX [Suspect]
     Active Substance: INTERFERON BETA-1A
     Indication: MULTIPLE SCLEROSIS
     Route: 030
     Dates: start: 200804, end: 20150104

REACTIONS (6)
  - Therapy cessation [Recovered/Resolved]
  - Paraesthesia [Recovered/Resolved]
  - Uterine leiomyoma [Recovered/Resolved]
  - Procedural haemorrhage [Recovered/Resolved]
  - Memory impairment [Unknown]
  - Influenza like illness [Recovered/Resolved]

NARRATIVE: CASE EVENT DATE: 200804
